FAERS Safety Report 8498006-9 (Version None)
Quarter: 2012Q3

REPORT INFORMATION
  Report Type: 
  Country: None (occurrence: None)
  Receive Date: 20120709
  Receipt Date: 20120618
  Transmission Date: 20120928
  Serious: No
  Sender: FDA-Public Use
  Company Number: US-AMGEN-USASP2012037826

PATIENT
  Age: 70 Year
  Sex: Female

DRUGS (5)
  1. ACTEMRA [Concomitant]
     Dosage: UNK
  2. REMICADE [Concomitant]
     Dosage: UNK
  3. METHOTREXATE [Concomitant]
     Dosage: 1 MG, UNK
     Dates: start: 20110908
  4. CIMZIA [Concomitant]
     Dosage: UNK
  5. ENBREL [Suspect]
     Indication: RHEUMATOID ARTHRITIS
     Dosage: 50 MG, QWK
     Dates: start: 20100124

REACTIONS (9)
  - INJECTION SITE ERYTHEMA [None]
  - INJECTION SITE INDURATION [None]
  - ULCER [None]
  - FEELING ABNORMAL [None]
  - RASH GENERALISED [None]
  - PRURITUS GENERALISED [None]
  - INJECTION SITE PAIN [None]
  - GAIT DISTURBANCE [None]
  - DRUG INEFFECTIVE [None]
